FAERS Safety Report 14532124 (Version 1)
Quarter: 2018Q1

REPORT INFORMATION
  Report Type: Spontaneous
  Country: US (occurrence: US)
  Receive Date: 20180214
  Receipt Date: 20180214
  Transmission Date: 20180509
  Serious: No
  Sender: FDA-Public Use
  Company Number: US-BIOGEN-2018BI00523749

PATIENT
  Age: 66 Year
  Sex: Female

DRUGS (1)
  1. TECFIDERA [Suspect]
     Active Substance: DIMETHYL FUMARATE
     Indication: MULTIPLE SCLEROSIS
     Route: 065

REACTIONS (7)
  - Drug ineffective [Unknown]
  - White blood cell count increased [Unknown]
  - Malaise [Unknown]
  - Fatigue [Unknown]
  - Back pain [Unknown]
  - Hepatic pain [Unknown]
  - Asthenia [Unknown]
